FAERS Safety Report 7135834-6 (Version None)
Quarter: 2010Q4

REPORT INFORMATION
  Report Type: 
  Country: None (occurrence: None)
  Receive Date: 20101203
  Receipt Date: 20101126
  Transmission Date: 20110411
  Serious: Yes (Hospitalization)
  Sender: FDA-Public Use
  Company Number: FR-ABBOTT-10P-056-0654575-00

PATIENT
  Sex: Male

DRUGS (10)
  1. FENOFIBRATE [Suspect]
     Indication: PRODUCT USED FOR UNKNOWN INDICATION
     Route: 048
     Dates: end: 20090701
  2. ESCITALOPRAM OXALATE [Suspect]
     Indication: DEPRESSION
     Route: 048
     Dates: end: 20090501
  3. ESCITALOPRAM OXALATE [Suspect]
     Route: 048
     Dates: start: 20090623, end: 20090720
  4. ESCITALOPRAM OXALATE [Suspect]
     Route: 048
     Dates: start: 20100720
  5. NORSET [Suspect]
     Indication: DEPRESSION
     Route: 048
     Dates: end: 20090501
  6. NORSET [Suspect]
     Route: 048
     Dates: start: 20090623, end: 20090720
  7. TERALITHE [Concomitant]
     Indication: DEPRESSION
     Route: 048
     Dates: start: 19960101
  8. SERESTA [Concomitant]
     Indication: PRODUCT USED FOR UNKNOWN INDICATION
     Route: 048
  9. LARGACTIL [Concomitant]
     Indication: PRODUCT USED FOR UNKNOWN INDICATION
     Route: 048
  10. IMOVANE [Concomitant]
     Indication: PRODUCT USED FOR UNKNOWN INDICATION
     Route: 048

REACTIONS (5)
  - CYTOLYTIC HEPATITIS [None]
  - HYPOMANIA [None]
  - MAJOR DEPRESSION [None]
  - RENAL FAILURE [None]
  - VISUAL IMPAIRMENT [None]
